FAERS Safety Report 23580828 (Version 4)
Quarter: 2025Q3

REPORT INFORMATION
  Report Type: Report from Study
  Country: CA (occurrence: CA)
  Receive Date: 20240229
  Receipt Date: 20250710
  Transmission Date: 20251021
  Serious: Yes (Other)
  Sender: SAMSUNG BIOEPIS
  Company Number: CA-SAMSUNG BIOEPIS-SB-2024-05252

PATIENT
  Age: 53 Year
  Sex: Female

DRUGS (2)
  1. RENFLEXIS [Suspect]
     Active Substance: INFLIXIMAB-ABDA
     Indication: Crohn^s disease
     Dates: start: 20220211
  2. RENFLEXIS [Suspect]
     Active Substance: INFLIXIMAB-ABDA
     Indication: Colitis ulcerative
     Route: 042

REACTIONS (8)
  - Haematochezia [Unknown]
  - Postmenopausal haemorrhage [Unknown]
  - Crohn^s disease [Recovered/Resolved]
  - Colitis ulcerative [Recovered/Resolved]
  - Abdominal pain [Unknown]
  - Diarrhoea [Unknown]
  - Abdominal discomfort [Unknown]
  - Off label use [Unknown]

NARRATIVE: CASE EVENT DATE: 20240104
